FAERS Safety Report 8202805-8 (Version None)
Quarter: 2012Q1

REPORT INFORMATION
  Report Type: 
  Country: None (occurrence: None)
  Receive Date: 20120312
  Receipt Date: 20120312
  Transmission Date: 20120608
  Serious: No
  Sender: FDA-Public Use
  Company Number: None

PATIENT

DRUGS (1)
  1. SALASALTE [Suspect]
     Indication: SWELLING
     Dosage: 750 MG
     Dates: start: 20120302, end: 20120305

REACTIONS (2)
  - SWELLING FACE [None]
  - OEDEMA PERIPHERAL [None]
